FAERS Safety Report 5603298-7 (Version None)
Quarter: 2008Q1

REPORT INFORMATION
  Report Type: 
  Country: None (occurrence: None)
  Receive Date: 20080123
  Receipt Date: 20080111
  Transmission Date: 20080703
  Serious: Yes (Other)
  Sender: FDA-Public Use
  Company Number: 2006-08-1237

PATIENT
  Age: 51 Year
  Sex: Male

DRUGS (4)
  1. PEG-INTRON [Suspect]
     Indication: HEPATITIS C
     Dosage: 0.5 MCG/KG; QW; SC
     Route: 058
     Dates: start: 20050607
  2. LEVOTHYROXINE SODIUM [Concomitant]
  3. PEG-INTRON [Concomitant]
  4. REBETOL [Concomitant]

REACTIONS (1)
  - PULMONARY HYPERTENSION [None]
